FAERS Safety Report 8924970 (Version 1)
Quarter: 2012Q4

REPORT INFORMATION
  Report Type: 
  Country: US (occurrence: US)
  Receive Date: 20121126
  Receipt Date: 20121126
  Transmission Date: 20130627
  Serious: Yes (Other)
  Sender: FDA-Public Use
  Company Number: US-ELI_LILLY_AND_COMPANY-US201211004466

PATIENT
  Sex: Female

DRUGS (2)
  1. HUMULIN 30% REGULAR, 70% NPH [Suspect]
     Indication: DIABETES MELLITUS
  2. HUMULIN 30% REGULAR, 70% NPH [Suspect]
     Dosage: UNK, prn

REACTIONS (2)
  - Eye haemorrhage [Unknown]
  - Cataract [Unknown]
